FAERS Safety Report 22632476 (Version 2)
Quarter: 2023Q2

REPORT INFORMATION
  Report Type: Report from Study
  Country: EG (occurrence: EG)
  Receive Date: 20230623
  Receipt Date: 20230630
  Transmission Date: 20230722
  Serious: Yes (Other)
  Sender: FDA-Public Use
  Company Number: EG-002147023-NVSC2023EG139058

PATIENT
  Age: 34 Year
  Sex: Female

DRUGS (10)
  1. HYRIMOZ [Suspect]
     Active Substance: ADALIMUMAB-ADAZ
     Indication: Crohn^s disease
     Dosage: UNK (4 SYRINGES AT WEEK 0 THEN 2 SYRINGES AT WEEK 2. THEN 40 MG EVERY OTHER WEEK, -1 PREFILLED SYRIN
     Route: 058
     Dates: start: 20230114, end: 202304
  2. HYRIMOZ [Suspect]
     Active Substance: ADALIMUMAB-ADAZ
     Dosage: UNK
     Route: 058
     Dates: start: 202305
  3. IMURAN [Concomitant]
     Active Substance: AZATHIOPRINE
     Indication: Immune system disorder
     Dosage: UNK (THREE TABLETS IN THE MORNING  AND 2 IN THE EVENING)
     Route: 048
     Dates: start: 202203
  4. HUMIRA [Concomitant]
     Active Substance: ADALIMUMAB
     Indication: Crohn^s disease
     Dosage: UNK (AS AN ALTERNATIVE FOR  HYRIMOZ)
     Route: 065
     Dates: start: 20230516
  5. PERFALGAN [Concomitant]
     Active Substance: ACETAMINOPHEN
     Indication: Analgesic therapy
     Dosage: UNK, PRN (ONE IV VIAL OR AS NEEDED)
     Route: 042
     Dates: start: 202210
  6. ENEMACORT [Concomitant]
     Indication: Large intestinal haemorrhage
     Dosage: 2 DOSAGE FORM, PRN (LAST TIME NEEDED WAS APRIL 2023))
     Route: 065
     Dates: start: 202203, end: 202304
  7. ENEMACORT [Concomitant]
     Dosage: UNK
     Route: 065
  8. VISCERALGINE [Concomitant]
     Indication: Gastrointestinal pain
     Dosage: UNK
     Route: 048
     Dates: start: 202203
  9. VISCERALGINE [Concomitant]
     Indication: Abdominal pain
     Dosage: UNK (TWO AMPOULES IN IV SOLUTION (AT TIMES OF DISTENTION)
     Route: 042
  10. VISCERALGINE [Concomitant]
     Indication: Abdominal distension

REACTIONS (23)
  - Anal fissure haemorrhage [Not Recovered/Not Resolved]
  - Lethargy [Not Recovered/Not Resolved]
  - Arthritis [Not Recovered/Not Resolved]
  - Faecal calprotectin increased [Unknown]
  - Vascular fragility [Not Recovered/Not Resolved]
  - Contusion [Not Recovered/Not Resolved]
  - Fatigue [Not Recovered/Not Resolved]
  - Skin discolouration [Not Recovered/Not Resolved]
  - Insomnia [Not Recovered/Not Resolved]
  - Peripheral venous disease [Not Recovered/Not Resolved]
  - Abdominal pain upper [Not Recovered/Not Resolved]
  - Haematochezia [Not Recovered/Not Resolved]
  - Rectal haemorrhage [Not Recovered/Not Resolved]
  - Arthralgia [Not Recovered/Not Resolved]
  - Gastrooesophageal reflux disease [Not Recovered/Not Resolved]
  - Pain [Not Recovered/Not Resolved]
  - Crohn^s disease [Not Recovered/Not Resolved]
  - Drug ineffective [Not Recovered/Not Resolved]
  - Eating disorder [Not Recovered/Not Resolved]
  - Constipation [Not Recovered/Not Resolved]
  - Abdominal distension [Not Recovered/Not Resolved]
  - Product dose omission issue [Unknown]
  - Off label use [Unknown]

NARRATIVE: CASE EVENT DATE: 20230101
